FAERS Safety Report 6497861-1 (Version None)
Quarter: 2009Q4

REPORT INFORMATION
  Report Type: 
  Country: None (occurrence: None)
  Receive Date: 20091215
  Receipt Date: 20091130
  Transmission Date: 20100525
  Serious: Yes (Other)
  Sender: FDA-Public Use
  Company Number: US-ASTRAZENECA-2009SE29777

PATIENT
  Age: 40 Year
  Sex: Female
  Weight: 56.7 kg

DRUGS (6)
  1. SEROQUEL XR [Suspect]
     Indication: BIPOLAR DISORDER
     Route: 048
  2. AMBIEN [Concomitant]
     Route: 048
  3. OXYCODONE [Concomitant]
     Route: 048
  4. OXYCONTIN [Concomitant]
     Route: 048
  5. XANAX [Concomitant]
     Route: 048
  6. ZOLOFT [Concomitant]
     Route: 048

REACTIONS (4)
  - EYE INFECTION [None]
  - EYE INJURY [None]
  - LOSS OF CONSCIOUSNESS [None]
  - RETINAL VASCULAR DISORDER [None]
